FAERS Safety Report 4643445-7 (Version None)
Quarter: 2005Q2

REPORT INFORMATION
  Report Type: 
  Country: None (occurrence: None)
  Receive Date: 20050324
  Receipt Date: 20050221
  Transmission Date: 20051028
  Serious: Yes (Hospitalization)
  Sender: FDA-Public Use
  Company Number: 212647

PATIENT
  Age: 63 Year
  Sex: Male

DRUGS (9)
  1. AVASTIN [Suspect]
     Indication: COLORECTAL CANCER METASTATIC
     Dates: start: 20041203, end: 20050218
  2. FLUOROURACIL [Concomitant]
  3. OXALIPLATIN (OXALIPLATIN) [Concomitant]
  4. LEUCOVORIN CALCIUM [Concomitant]
  5. IRINOTECAN HCL [Concomitant]
  6. PROCARDIA [Concomitant]
  7. VASOTEC [Concomitant]
  8. ARANESP [Concomitant]
  9. FLOMAX [Concomitant]

REACTIONS (2)
  - PHLEBOTHROMBOSIS [None]
  - PULMONARY EMBOLISM [None]
